FAERS Safety Report 6128268-4 (Version None)
Quarter: 2009Q1

REPORT INFORMATION
  Report Type: 
  Country: None (occurrence: None)
  Receive Date: 20090323
  Receipt Date: 20090319
  Transmission Date: 20090719
  Serious: Yes (Death)
  Sender: FDA-Public Use
  Company Number: US-ELI_LILLY_AND_COMPANY-US200903004926

PATIENT
  Age: 40 Year
  Sex: Male

DRUGS (1)
  1. XIGRIS [Suspect]
     Indication: STAPHYLOCOCCAL SEPSIS
     Dates: start: 20090316

REACTIONS (1)
  - DEATH [None]
